FAERS Safety Report 4998499-5 (Version None)
Quarter: 2006Q2

REPORT INFORMATION
  Report Type: 
  Country: None (occurrence: None)
  Receive Date: 20060508
  Receipt Date: 20060425
  Transmission Date: 20061013
  Serious: Yes (Other)
  Sender: FDA-Public Use
  Company Number: 2006053500

PATIENT
  Age: 81 Year
  Sex: Female

DRUGS (3)
  1. CLINDAMYCIN PHOSPHATE [Suspect]
     Indication: ILL-DEFINED DISORDER
     Dosage: 1200 MG INTRAVENOUS
     Route: 042
     Dates: start: 20060413, end: 20060416
  2. SINGULAIR [Concomitant]
  3. SYMMETREL [Concomitant]

REACTIONS (1)
  - HYPOGLYCAEMIA [None]
